FAERS Safety Report 5128223-7 (Version None)
Quarter: 2006Q4

REPORT INFORMATION
  Report Type: 
  Country: None (occurrence: None)
  Receive Date: 20061011
  Receipt Date: 20061002
  Transmission Date: 20070319
  Serious: Yes (Hospitalization, Other)
  Sender: FDA-Public Use
  Company Number: 2006119110

PATIENT
  Age: 20 Year
  Sex: Female
  Weight: 72.7 kg

DRUGS (3)
  1. DEPO-PROVERA [Suspect]
     Indication: CONTRACEPTION
     Dosage: 150 MG (150 MG, FIRST INJECTION), INTRAMUSCULAR; SEE IMAGE
     Route: 030
     Dates: start: 20050311, end: 20050311
  2. DEPO-PROVERA [Suspect]
     Indication: CONTRACEPTION
     Dosage: 150 MG (150 MG, FIRST INJECTION), INTRAMUSCULAR; SEE IMAGE
     Route: 030
     Dates: start: 20060623, end: 20060623
  3. REDUCTIL (SIBUTRAMINE HYDROCHLORIDE) [Concomitant]

REACTIONS (1)
  - INJECTION SITE ABSCESS [None]
